FAERS Safety Report 12998751 (Version 2)
Quarter: 2016Q4

REPORT INFORMATION
  Report Type: Report from Study
  Country: KR (occurrence: KR)
  Receive Date: 20161205
  Receipt Date: 20161209
  Transmission Date: 20170207
  Serious: Yes (Hospitalization)
  Sender: FDA-Public Use
  Company Number: KR-ROCHE-1859170

PATIENT
  Age: 69 Year
  Sex: Female
  Weight: 40 kg

DRUGS (5)
  1. BEVACIZUMAB [Suspect]
     Active Substance: BEVACIZUMAB
     Indication: NEOPLASM MALIGNANT
     Dosage: MOST RECENT DOSE PRIOR TO AE ONSET: 430MG ON 15/NOV/2016
     Route: 042
     Dates: start: 20161004
  2. LEUCOVORIN. [Suspect]
     Active Substance: LEUCOVORIN
     Indication: NEOPLASM MALIGNANT
     Dosage: MOST RECENT DOSE PRIOR TO AE ONSET: 262 (UNIT NOT REPORTED) ON 15/NOV/2016
     Route: 042
  3. 5-FLUOROURACIL [Suspect]
     Active Substance: FLUOROURACIL
     Indication: NEOPLASM MALIGNANT
     Dosage: MOST RECENT DOSE PRIOR TO AE ONSET: 3144 (UNIT NOT REPORTED) ON 15/NOV/2016
     Route: 042
  4. ATEZOLIZUMAB [Suspect]
     Active Substance: ATEZOLIZUMAB
     Indication: NEOPLASM MALIGNANT
     Dosage: MOST RECENT DOSE ADMINISTERED PRIOR TO AE ONSET: 840MG ON 15/NOV/2016
     Route: 042
     Dates: start: 20161004
  5. OXALIPLATIN. [Suspect]
     Active Substance: OXALIPLATIN
     Indication: NEOPLASM MALIGNANT
     Dosage: MOST RECENT DOSE ADMINISTERED PRIOR TO AE ONSET: 111MG ON 15/NOV/2016
     Route: 042
     Dates: start: 20161004

REACTIONS (1)
  - Fatigue [Not Recovered/Not Resolved]

NARRATIVE: CASE EVENT DATE: 20161120
